FAERS Safety Report 5118290-9 (Version None)
Quarter: 2006Q4

REPORT INFORMATION
  Report Type: 
  Country: None (occurrence: None)
  Receive Date: 20061002
  Receipt Date: 20060818
  Transmission Date: 20070319
  Serious: No
  Sender: FDA-Public Use
  Company Number: US-BRISTOL-MYERS SQUIBB COMPANY-13482500

PATIENT
  Age: 47 Year
  Sex: Female
  Weight: 63 kg

DRUGS (16)
  1. ORENCIA [Suspect]
  2. ASCORBIC ACID [Concomitant]
  3. CALCIUM GLUCONATE [Concomitant]
  4. FERROUS SULFATE TAB [Concomitant]
  5. OMEPRAZOLE [Concomitant]
  6. PREDNISONE [Concomitant]
  7. FOLIC ACID [Concomitant]
  8. FOSAMAX [Concomitant]
  9. METHOTREXATE [Concomitant]
  10. LISINOPRIL [Concomitant]
  11. AZATHIOPRINE [Concomitant]
  12. GLIPIZIDE [Concomitant]
  13. ENDOCET [Concomitant]
  14. ACYCLOVIR [Concomitant]
  15. PSEUDOEPHEDRINE HCL [Concomitant]
  16. SODIUM CHLORIDE [Concomitant]
     Route: 045

REACTIONS (1)
  - INCREASED TENDENCY TO BRUISE [None]
